FAERS Safety Report 4951319-7 (Version None)
Quarter: 2006Q1

REPORT INFORMATION
  Report Type: 
  Country: None (occurrence: None)
  Receive Date: 20060317
  Receipt Date: 20060227
  Transmission Date: 20060701
  Serious: Yes (Other)
  Sender: FDA-Public Use
  Company Number: US200602005465

PATIENT
  Sex: Female

DRUGS (2)
  1. FORTEO [Suspect]
     Dates: start: 20060110
  2. FORTEO [Concomitant]

REACTIONS (2)
  - BLADDER NEOPLASM [None]
  - NEOPLASM RECURRENCE [None]
